FAERS Safety Report 5335878-0 (Version None)
Quarter: 2007Q2

REPORT INFORMATION
  Report Type: 
  Country: None (occurrence: None)
  Receive Date: 20070301
  Receipt Date: 20061227
  Transmission Date: 20071010
  Serious: Yes (Hospitalization, Other)
  Sender: FDA-Public Use
  Company Number: 151393USA

PATIENT
  Age: 31 Year
  Sex: Female

DRUGS (4)
  1. PAROXETINE HYDROCHLORIDE [Suspect]
     Dosage: ORAL
     Route: 048
     Dates: start: 20061006, end: 20061211
  2. LORAZEPAM [Suspect]
     Indication: ANXIETY
     Dosage: ORAL
     Route: 048
     Dates: start: 20061122, end: 20061211
  3. TRAZODONE HCL [Suspect]
     Dosage: ORAL
     Route: 048
     Dates: start: 20061006, end: 20061211
  4. ALCOHOL [Suspect]
     Dates: start: 20061122, end: 20061129

REACTIONS (7)
  - ALCOHOLISM [None]
  - AMNESIA [None]
  - CONTUSION [None]
  - LOSS OF CONSCIOUSNESS [None]
  - NAUSEA [None]
  - TACHYCARDIA [None]
  - VOMITING [None]
